FAERS Safety Report 21780908 (Version 1)
Quarter: 2022Q4

REPORT INFORMATION
  Report Type: Report from Study
  Country: FR (occurrence: None)
  Receive Date: 20221227
  Receipt Date: 20221227
  Transmission Date: 20230112
  Serious: Yes (Hospitalization)
  Sender: FDA-Public Use
  Company Number: FR-ROCHE-3189776

PATIENT
  Age: 68 Year
  Sex: Female
  Weight: 51 kg

DRUGS (6)
  1. ATEZOLIZUMAB [Suspect]
     Active Substance: ATEZOLIZUMAB
     Indication: Thyroid cancer
     Dosage: ON 05/SEP/2022, THE PATIENT RECEIVED THE MOST RECENT DOSE PRIOR TO THE EVENT.
     Route: 041
     Dates: start: 20200717
  2. CABOZANTINIB [Suspect]
     Active Substance: CABOZANTINIB
     Indication: Thyroid cancer
     Dosage: ON 05/SEP/2022, THE PATIENT RECEIVED THE MOST RECENT DOSE OF 20 MG EVERY DAY PRIOR TO THE EVENT.
     Route: 048
     Dates: start: 20200717, end: 20220920
  3. CABOZANTINIB [Suspect]
     Active Substance: CABOZANTINIB
     Route: 048
     Dates: end: 20221107
  4. POLYSILANE (FRANCE) [Concomitant]
  5. TRIMEBUTINE [Concomitant]
     Active Substance: TRIMEBUTINE
  6. ACEBUTOLOL HYDROCHLORIDE [Concomitant]
     Active Substance: ACEBUTOLOL HYDROCHLORIDE

REACTIONS (1)
  - Diabetes mellitus [Not Recovered/Not Resolved]

NARRATIVE: CASE EVENT DATE: 20220921
